FAERS Safety Report 4647751-1 (Version None)
Quarter: 2005Q2

REPORT INFORMATION
  Report Type: 
  Country: None (occurrence: None)
  Receive Date: 20050427
  Receipt Date: 20050427
  Transmission Date: 20051028
  Serious: Yes (Hospitalization, Other)
  Sender: FDA-Public Use
  Company Number: None

PATIENT
  Sex: Female
  Weight: 105.5 kg

DRUGS (3)
  1. CISPLATIN [Suspect]
     Dosage: 100MG/M2 ON DAYS 1 AND 22
     Dates: start: 20050414, end: 20050414
  2. RADIATION THERAPY BOOST [Suspect]
     Dosage: 72 GY/42 FX FOR 6 WEEKS
     Dates: start: 20050414
  3. LOSARTAN POTASSIUM [Concomitant]

REACTIONS (4)
  - DEHYDRATION [None]
  - NAUSEA [None]
  - RENAL FAILURE ACUTE [None]
  - VOMITING [None]
